FAERS Safety Report 25838731 (Version 1)
Quarter: 2025Q3

REPORT INFORMATION
  Report Type: Report from Study
  Country: MX (occurrence: MX)
  Receive Date: 20250924
  Receipt Date: 20250924
  Transmission Date: 20251020
  Serious: Yes (Disabling)
  Sender: ABBVIE
  Company Number: MX-ABBVIE-6472315

PATIENT
  Age: 63 Year
  Sex: Male
  Weight: 61 kg

DRUGS (1)
  1. VENCLEXTA [Suspect]
     Active Substance: VENETOCLAX
     Indication: Chronic lymphocytic leukaemia
     Dosage: 400 MILLIGRAM
     Route: 048
     Dates: start: 20250415

REACTIONS (3)
  - Limb injury [Recovered/Resolved]
  - Thyroid disorder [Unknown]
  - Gait disturbance [Recovered/Resolved]

NARRATIVE: CASE EVENT DATE: 20250601
